FAERS Safety Report 9554387 (Version 2)
Quarter: 2013Q3

REPORT INFORMATION
  Report Type: Spontaneous
  Country: US (occurrence: US)
  Receive Date: 20130925
  Receipt Date: 20130925
  Transmission Date: 20140515
  Serious: Yes (Hospitalization, Other)
  Sender: FDA-Public Use
  Company Number: US-BRISTOL-MYERS SQUIBB COMPANY-18894949

PATIENT
  Age: 50 Year
  Sex: Female
  Weight: 63.5 kg

DRUGS (7)
  1. ERBITUX [Suspect]
     Indication: HEAD AND NECK CANCER
     Dosage: 250MG/M2 IV WEEKLY/UPTO 6 CYCLES?3CYCL25FEB13TO22APR13?16DOSES-09SEP13
     Route: 042
     Dates: start: 20130225
  2. CARBOPLATIN [Suspect]
     Dosage: 1DF=AUC 5; DAY 1
     Route: 042
  3. 5-FU [Suspect]
     Dosage: DAY 1 TO DAY4
     Route: 042
  4. HYDROCHLOROTHIAZIDE [Concomitant]
     Route: 048
  5. ATENOLOL [Concomitant]
     Route: 048
  6. MAGIC MOUTHWASH [Concomitant]
     Dosage: 1DF:1 TO 2 TEASPOON FULL AND HS
  7. LEVOTHYROXINE [Concomitant]
     Route: 048

REACTIONS (5)
  - Lymphoedema [Unknown]
  - Radiation skin injury [Unknown]
  - Mucosal inflammation [Unknown]
  - Pancytopenia [Unknown]
  - Pyrexia [Unknown]
